FAERS Safety Report 15202724 (Version 1)
Quarter: 2018Q3

REPORT INFORMATION
  Report Type: Spontaneous
  Country: ES (occurrence: ES)
  Receive Date: 20180726
  Receipt Date: 20180726
  Transmission Date: 20181010
  Serious: Yes (Hospitalization)
  Sender: FDA-Public Use
  Company Number: ES-SA-2018SA194367

PATIENT
  Age: 76 Year
  Sex: Female

DRUGS (6)
  1. INDAPAMIDE. [Suspect]
     Active Substance: INDAPAMIDE
     Indication: HYPERTENSION
     Dosage: 1,5 MG DIA
     Route: 048
     Dates: start: 20120101
  2. PARACETAMOL [Concomitant]
     Active Substance: ACETAMINOPHEN
     Dosage: 1 G, QD
     Route: 048
     Dates: start: 20120101
  3. FOSTER [PIROXICAM] [Concomitant]
     Dosage: 2 DF, QD
     Route: 048
     Dates: start: 20120101
  4. CITALOPRAM [Concomitant]
     Active Substance: CITALOPRAM HYDROBROMIDE
     Dosage: 2 MG, QD
     Route: 048
     Dates: start: 20120101
  5. OMEPRAZOLE. [Concomitant]
     Active Substance: OMEPRAZOLE
     Dosage: 1 DF, QD
     Route: 048
     Dates: start: 20120101
  6. BILAXTEN [Concomitant]
     Active Substance: BILASTINE
     Dosage: 1 DF, QD
     Route: 048
     Dates: start: 20120101

REACTIONS (2)
  - Eosinophilia [Not Recovered/Not Resolved]
  - Interstitial lung disease [Not Recovered/Not Resolved]

NARRATIVE: CASE EVENT DATE: 20150525
